FAERS Safety Report 21492213 (Version 1)
Quarter: 2022Q4

REPORT INFORMATION
  Report Type: Spontaneous
  Country: US (occurrence: None)
  Receive Date: 20221020
  Receipt Date: 20221020
  Transmission Date: 20230112
  Serious: Yes (Hospitalization)
  Sender: FDA-Public Use
  Company Number: None

PATIENT
  Age: 9 Month
  Sex: Male
  Weight: 67.5 kg

DRUGS (4)
  1. OLANZAPINE [Suspect]
     Active Substance: OLANZAPINE
     Indication: Paranoia
     Dosage: FREQUENCY : AT BEDTIME;?
     Route: 048
     Dates: start: 20220927, end: 20221019
  2. TRAZODONE [Concomitant]
     Active Substance: TRAZODONE HYDROCHLORIDE
  3. Buspirone Hal [Concomitant]
  4. HYDROXYZINE PAM [Concomitant]

REACTIONS (8)
  - Miosis [None]
  - Mobility decreased [None]
  - Loss of personal independence in daily activities [None]
  - Drooling [None]
  - Gait disturbance [None]
  - Gait disturbance [None]
  - Vision blurred [None]
  - Reduced facial expression [None]

NARRATIVE: CASE EVENT DATE: 20221019
